FAERS Safety Report 21442911 (Version 1)
Quarter: 2022Q4

REPORT INFORMATION
  Report Type: Spontaneous
  Country: DE (occurrence: DE)
  Receive Date: 20221012
  Receipt Date: 20221012
  Transmission Date: 20230112
  Serious: Yes (Hospitalization, Other)
  Sender: FDA-Public Use
  Company Number: DE-ADRED-08265-01

PATIENT
  Age: 74 Year
  Sex: Male

DRUGS (7)
  1. ASPIRIN [Interacting]
     Active Substance: ASPIRIN
     Indication: Product used for unknown indication
     Dosage: 100 MILLIGRAM, 0-1-0-0
     Route: 048
  2. CLOPIDOGREL [Interacting]
     Active Substance: CLOPIDOGREL BISULFATE
     Indication: Product used for unknown indication
     Dosage: 75 MILLIGRAM, 1-0-0-0
     Route: 048
  3. PIRACETAM [Interacting]
     Active Substance: PIRACETAM
     Indication: Product used for unknown indication
     Dosage: 1200 MILLIGRAM, 1-0-1-0
     Route: 048
  4. PANTOPRAZOLE SODIUM [Concomitant]
     Active Substance: PANTOPRAZOLE SODIUM
     Indication: Product used for unknown indication
     Dosage: 40 MILLIGRAM, 1-0-0-0
     Route: 048
  5. AMLODIPINE BESYLATE [Concomitant]
     Active Substance: AMLODIPINE BESYLATE
     Indication: Product used for unknown indication
     Dosage: 5 MILLIGRAM, 0.5-0-0.5-0
     Route: 048
  6. ATORVASTATIN [Concomitant]
     Active Substance: ATORVASTATIN
     Indication: Product used for unknown indication
     Dosage: 40 MILLIGRAM, 0-0-1-0
     Route: 048
  7. EZETIMIBE [Concomitant]
     Active Substance: EZETIMIBE
     Indication: Product used for unknown indication
     Dosage: 10 MILLIGRAM, 0-0-1-0
     Route: 048

REACTIONS (5)
  - Haematemesis [Unknown]
  - Weight decreased [Unknown]
  - Decreased appetite [Unknown]
  - Labelled drug-drug interaction medication error [Unknown]
  - Medication error [Unknown]
